FAERS Safety Report 19990169 (Version 1)
Quarter: 2021Q4

REPORT INFORMATION
  Report Type: Spontaneous
  Country: US (occurrence: US)
  Receive Date: 20211022
  Receipt Date: 20211022
  Transmission Date: 20220303
  Serious: No
  Sender: FDA-Public Use
  Company Number: None

PATIENT
  Age: 32 Year
  Sex: Female

DRUGS (2)
  1. EPCLUSA [Suspect]
     Active Substance: SOFOSBUVIR\VELPATASVIR
     Indication: Hepatitis viral
     Dosage: ?          OTHER DOSE:400-100MG;
     Route: 048
     Dates: start: 20210614
  2. EPCLUSA [Suspect]
     Active Substance: SOFOSBUVIR\VELPATASVIR
     Indication: Hepatitis C

REACTIONS (3)
  - Nausea [None]
  - Inappropriate schedule of product administration [None]
  - Inappropriate schedule of product administration [None]

NARRATIVE: CASE EVENT DATE: 20210710
